FAERS Safety Report 25541367 (Version 2)
Quarter: 2025Q3

REPORT INFORMATION
  Report Type: Spontaneous
  Country: EU (occurrence: EU)
  Receive Date: 20250711
  Receipt Date: 20250810
  Transmission Date: 20251021
  Serious: Yes (Hospitalization)
  Sender: ALEXION PHARMACEUTICALS
  Company Number: None

PATIENT
  Age: 83 Year
  Sex: Male

DRUGS (2)
  1. CALQUENCE [Suspect]
     Active Substance: ACALABRUTINIB
     Indication: Chronic lymphocytic leukaemia
     Dosage: TEMPORARY DISCONTINUED UPON HOSPITALIZATION.
     Dates: end: 202506
  2. CALQUENCE [Suspect]
     Active Substance: ACALABRUTINIB
     Dosage: REINTRODUCTION OF CALQUENCE THE DAY AFTER DISCHARGE. HOWEVER, RECURRENCE OF ADVERSE REACTIONS LED TO TRIAL DISCONTINUATION. DATES NOT FURTHER SPECIFIED.
     Dates: start: 202506, end: 202506

REACTIONS (7)
  - Diarrhoea [Recovering/Resolving]
  - Dehydration [Recovering/Resolving]
  - General physical health deterioration [Recovering/Resolving]
  - Diarrhoea [Recovering/Resolving]
  - Electrolyte imbalance [Recovering/Resolving]
  - Dehydration [Recovering/Resolving]
  - General physical health deterioration [Recovering/Resolving]

NARRATIVE: CASE EVENT DATE: 20250601
